FAERS Safety Report 9804965 (Version 1)
Quarter: 2014Q1

REPORT INFORMATION
  Report Type: Spontaneous
  Country: US (occurrence: US)
  Receive Date: 20140109
  Receipt Date: 20140109
  Transmission Date: 20141002
  Serious: Yes (Death)
  Sender: FDA-Public Use
  Company Number: US-ROCHE-1329831

PATIENT
  Age: 73 Year
  Sex: Female

DRUGS (1)
  1. LUCENTIS [Suspect]
     Indication: EYE DISORDER
     Dosage: LEFT EYE, ONE INJECTION RECEIVED
     Route: 065
     Dates: start: 20131022

REACTIONS (4)
  - Myocardial infarction [Fatal]
  - Feeling abnormal [Unknown]
  - Visual impairment [Unknown]
  - Dizziness [Unknown]
